FAERS Safety Report 20508483 (Version 1)
Quarter: 2022Q1

REPORT INFORMATION
  Report Type: Report from Study
  Country: US (occurrence: US)
  Receive Date: 20220223
  Receipt Date: 20220223
  Transmission Date: 20220424
  Serious: Yes (Other)
  Sender: FDA-Public Use
  Company Number: US-BAYER-2022A026874

PATIENT

DRUGS (2)
  1. GADOBUTROL [Suspect]
     Active Substance: GADOBUTROL
  2. OPTIMARK [Suspect]
     Active Substance: GADOVERSETAMIDE

REACTIONS (2)
  - Gadolinium deposition disease [Not Recovered/Not Resolved]
  - Nontherapeutic agent urine positive [None]
